FAERS Safety Report 25444731 (Version 1)
Quarter: 2025Q2

REPORT INFORMATION
  Report Type: Spontaneous
  Country: US (occurrence: US)
  Receive Date: 20250617
  Receipt Date: 20250617
  Transmission Date: 20250716
  Serious: Yes (Other)
  Sender: ABBVIE
  Company Number: US-ABBVIE-6329921

PATIENT
  Sex: Male

DRUGS (1)
  1. UPADACITINIB [Suspect]
     Active Substance: UPADACITINIB
     Indication: Rheumatoid arthritis
     Route: 048

REACTIONS (2)
  - Suicidal ideation [Unknown]
  - Depression [Unknown]
